FAERS Safety Report 24987524 (Version 1)
Quarter: 2025Q1

REPORT INFORMATION
  Report Type: Spontaneous
  Country: CN (occurrence: CN)
  Receive Date: 20250219
  Receipt Date: 20250219
  Transmission Date: 20250409
  Serious: Yes (Hospitalization, Other)
  Sender: PFIZER
  Company Number: CN-PFIZER INC-PV202500018729

PATIENT
  Age: 9 Year
  Sex: Male
  Weight: 34 kg

DRUGS (4)
  1. CYTARABINE [Suspect]
     Active Substance: CYTARABINE
     Indication: Burkitt^s lymphoma
     Dosage: 3.39 G, 1X/DAY
     Route: 042
     Dates: start: 20250115, end: 20250118
  2. ETOPOSIDE [Suspect]
     Active Substance: ETOPOSIDE
     Indication: Burkitt^s lymphoma
     Dosage: 113 MG, 1X/DAY
     Route: 042
     Dates: start: 20250115, end: 20250118
  3. SODIUM CHLORIDE [Concomitant]
     Active Substance: SODIUM CHLORIDE
     Indication: Vehicle solution use
     Dosage: 450 ML, 1X/DAY
     Route: 042
     Dates: start: 20250115, end: 20250118
  4. SODIUM CHLORIDE [Concomitant]
     Active Substance: SODIUM CHLORIDE
     Dosage: 430 ML, 1X/DAY
     Route: 042
     Dates: start: 20250115, end: 20250118

REACTIONS (9)
  - Myelosuppression [Recovering/Resolving]
  - Tumour lysis syndrome [Unknown]
  - Headache [Recovering/Resolving]
  - Rash [Recovering/Resolving]
  - Pruritus [Recovering/Resolving]
  - Scratch [Unknown]
  - Drug hypersensitivity [Unknown]
  - Epistaxis [Recovered/Resolved]
  - Infection [Unknown]

NARRATIVE: CASE EVENT DATE: 20250116
